FAERS Safety Report 8200545 (Version 2)
Quarter: 2013Q1

REPORT INFORMATION
  Report Type: Spontaneous
  Country: US (occurrence: US)
  Receive Date: 20111026
  Receipt Date: 20130108
  Transmission Date: 20140127
  Serious: Yes (Hospitalization)
  Sender: FDA-Public Use
  Company Number: US-GLAXOSMITHKLINE-A0917636A

PATIENT
  Age: 53 Year
  Sex: Female
  Weight: 86.8 kg

DRUGS (1)
  1. AVANDIA [Suspect]
     Indication: DIABETES MELLITUS
     Route: 048
     Dates: start: 20050301, end: 20051001

REACTIONS (2)
  - Cardiovascular disorder [Not Recovered/Not Resolved]
  - Hypoaesthesia [Unknown]
